FAERS Safety Report 9526931 (Version 1)
Quarter: 2013Q1

REPORT INFORMATION
  Report Type: Spontaneous
  Country: US (occurrence: None)
  Receive Date: 20130311
  Receipt Date: 20130311
  Transmission Date: 20140127
  Serious: No
  Sender: FDA-Public Use
  Company Number: 1301USA011134

PATIENT
  Age: 83 Year
  Sex: Female

DRUGS (3)
  1. ZIOPTAN (TAFLUPROST) EYE DROPS, SOLUTION, 00.15% [Suspect]
     Indication: GLAUCOMA
     Dosage: ONE DROP IN EACH EYE IN THE EVENING
     Route: 047
     Dates: start: 20121229
  2. SIMVASTATIN TABLETS [Concomitant]
  3. PLAVIX (CLOPIDOGREL BISULFATE) [Concomitant]

REACTIONS (3)
  - Ocular hyperaemia [None]
  - Product quality issue [None]
  - Eye pruritus [None]
